FAERS Safety Report 10042746 (Version 2)
Quarter: 2014Q2

REPORT INFORMATION
  Report Type: Spontaneous
  Country: US (occurrence: US)
  Receive Date: 20140327
  Receipt Date: 20140617
  Transmission Date: 20141212
  Serious: Yes (Hospitalization, Other)
  Sender: FDA-Public Use
  Company Number: US-GILEAD-2014-0098055

PATIENT
  Age: 61 Year
  Sex: Female

DRUGS (10)
  1. LETAIRIS [Suspect]
     Indication: PULMONARY HYPERTENSION
     Dosage: 5 MG, QD
     Route: 065
     Dates: start: 20140224, end: 20140310
  2. VITAMIN D NOS [Concomitant]
  3. CELEXA                             /00582602/ [Concomitant]
  4. FLONASE                            /00972202/ [Concomitant]
  5. FUROSEMIDE [Concomitant]
  6. ISOSORBIDE [Concomitant]
  7. METFORMIN [Concomitant]
  8. REMERON [Concomitant]
  9. PRILOSEC                           /00661203/ [Concomitant]
  10. POTASSIUM [Concomitant]

REACTIONS (2)
  - Chronic obstructive pulmonary disease [Unknown]
  - Respiratory failure [Recovered/Resolved]
